FAERS Safety Report 11593912 (Version 2)
Quarter: 2015Q4

REPORT INFORMATION
  Report Type: Spontaneous
  Country: US (occurrence: None)
  Receive Date: 20151005
  Receipt Date: 20151016
  Transmission Date: 20160304
  Serious: Yes (Other)
  Sender: FDA-Public Use
  Company Number: US-MDT-ADR-2015-01900

PATIENT
  Age: 54 Year
  Sex: Male

DRUGS (2)
  1. BACLOFEN INTRATHECAL [Suspect]
     Active Substance: BACLOFEN
  2. GABLOFEN [Suspect]
     Active Substance: BACLOFEN
     Dosage: 195 MCG/DAY

REACTIONS (6)
  - Staphylococcal infection [None]
  - Gram stain negative [None]
  - Staphylococcus test positive [None]
  - White blood cell count abnormal [None]
  - Implant site infection [None]
  - Culture wound positive [None]
